FAERS Safety Report 7367705-4 (Version None)
Quarter: 2011Q1

REPORT INFORMATION
  Report Type: 
  Country: None (occurrence: None)
  Receive Date: 20110311
  Receipt Date: 20110303
  Transmission Date: 20110831
  Serious: Yes (Hospitalization, Other)
  Sender: FDA-Public Use
  Company Number: 011776

PATIENT
  Sex: Female
  Weight: 73 kg

DRUGS (17)
  1. BERODUAL [Concomitant]
  2. REQUIP [Suspect]
     Indication: PARKINSON'S DISEASE
     Dosage: (4 MG QD)
     Dates: start: 20091202, end: 20091208
  3. STALEVO 100 [Concomitant]
  4. ATENOLOL [Concomitant]
  5. SIFROL (SIFROL)(NOT SPECIFIED) [Suspect]
     Indication: PARKINSON'S DISEASE
     Dosage: (0.7 MG QID), (0.52 MG QD), (1.05 MG QD), (2.1 MG QD)
     Dates: start: 20091212, end: 20091216
  6. SIFROL (SIFROL)(NOT SPECIFIED) [Suspect]
     Indication: PARKINSON'S DISEASE
     Dosage: (0.7 MG QID), (0.52 MG QD), (1.05 MG QD), (2.1 MG QD)
     Dates: start: 20091217
  7. SIFROL (SIFROL)(NOT SPECIFIED) [Suspect]
     Indication: PARKINSON'S DISEASE
     Dosage: (0.7 MG QID), (0.52 MG QD), (1.05 MG QD), (2.1 MG QD)
     Dates: start: 20091209, end: 20091211
  8. SIFROL (SIFROL)(NOT SPECIFIED) [Suspect]
     Indication: PARKINSON'S DISEASE
     Dosage: (0.7 MG QID), (0.52 MG QD), (1.05 MG QD), (2.1 MG QD)
     Dates: start: 20020101, end: 20091028
  9. AZILECT [Concomitant]
  10. NEUPRO [Suspect]
     Indication: PARKINSON'S DISEASE
     Dosage: (16 MG QD TRANSDERMAL)
     Route: 062
     Dates: start: 20091029, end: 20091202
  11. AMANTADINE HCL [Concomitant]
  12. NACOM  (NACOM ) [Suspect]
     Indication: PARKINSON'S DISEASE
     Dosage: 100 MG  QID), (100 MG BID), (100 MG QD)
     Dates: start: 20091029, end: 20091029
  13. NACOM  (NACOM ) [Suspect]
     Indication: PARKINSON'S DISEASE
     Dosage: 100 MG  QID), (100 MG BID), (100 MG QD)
     Dates: start: 20091030, end: 20091030
  14. NACOM  (NACOM ) [Suspect]
     Indication: PARKINSON'S DISEASE
     Dosage: 100 MG  QID), (100 MG BID), (100 MG QD)
     Dates: start: 20091102
  15. MADOPAR  LT [Concomitant]
  16. ISICOM [Concomitant]
  17. FLUTIDE [Concomitant]

REACTIONS (3)
  - FREEZING PHENOMENON [None]
  - HYPOKINESIA [None]
  - TREMOR [None]
